FAERS Safety Report 16164001 (Version 1)
Quarter: 2019Q2

REPORT INFORMATION
  Report Type: Spontaneous
  Country: BG (occurrence: BG)
  Receive Date: 20190405
  Receipt Date: 20190405
  Transmission Date: 20190711
  Serious: Yes (Hospitalization, Other)
  Sender: FDA-Public Use
  Company Number: BG-ASTRAZENECA-2019SE51370

PATIENT
  Age: 64 Year
  Sex: Male

DRUGS (1)
  1. SYMBICORT [Suspect]
     Active Substance: BUDESONIDE\FORMOTEROL FUMARATE DIHYDRATE
     Dosage: 320/9 MCG 2X1 INHALATIONS DAILY
     Route: 055

REACTIONS (2)
  - Asthma [Unknown]
  - Viral infection [Unknown]

NARRATIVE: CASE EVENT DATE: 20170206
